FAERS Safety Report 6535717-6 (Version None)
Quarter: 2010Q1

REPORT INFORMATION
  Report Type: 
  Country: None (occurrence: None)
  Receive Date: 20100106
  Receipt Date: 20091222
  Transmission Date: 20100710
  Serious: Yes (Hospitalization)
  Sender: FDA-Public Use
  Company Number: 2009002148

PATIENT
  Age: 69 Year
  Sex: Female
  Weight: 47.8 kg

DRUGS (7)
  1. ERLOTINIB HYDROCHLORIDE [Suspect]
     Indication: NON-SMALL CELL LUNG CANCER
     Dosage: 150 MG, QD, ORAL
     Route: 048
     Dates: start: 20090511, end: 20090601
  2. CP-751, 871 [Suspect]
     Indication: NON-SMALL CELL LUNG CANCER
     Dosage: 1018 MG, 1X DAILY FOR 2 DAYS EVERY 3 WEEKS, INTRAVENOUS
     Route: 042
     Dates: start: 20090511, end: 20090511
  3. DICLOFENAC SODIUM [Concomitant]
  4. ACETAMINOPHEN [Concomitant]
  5. LANSOPRAZOLE [Concomitant]
  6. DEXAMETHASONE TAB [Concomitant]
  7. VALPROATE SODIUM [Concomitant]

REACTIONS (6)
  - CAMPYLOBACTER INFECTION [None]
  - CONFUSIONAL STATE [None]
  - CULTURE STOOL POSITIVE [None]
  - DEHYDRATION [None]
  - DIARRHOEA [None]
  - RENAL FAILURE ACUTE [None]
